FAERS Safety Report 8623475-0 (Version None)
Quarter: 2012Q3

REPORT INFORMATION
  Report Type: 
  Country: None (occurrence: None)
  Receive Date: 20120824
  Receipt Date: 20120824
  Transmission Date: 20120928
  Serious: Yes (Hospitalization, Other)
  Sender: FDA-Public Use
  Company Number: None

PATIENT
  Age: 47 Year
  Sex: Male
  Weight: 145.151 kg

DRUGS (1)
  1. GABAPENTIN [Suspect]
     Indication: CEREBROVASCULAR ACCIDENT
     Dosage: 1-3TIMES
     Dates: start: 20120603, end: 20120820

REACTIONS (1)
  - UNEVALUABLE EVENT [None]
